FAERS Safety Report 7373040-0 (Version None)
Quarter: 2011Q1

REPORT INFORMATION
  Report Type: 
  Country: None (occurrence: None)
  Receive Date: 20110324
  Receipt Date: 20101213
  Transmission Date: 20110831
  Serious: Yes (Hospitalization)
  Sender: FDA-Public Use
  Company Number: US-BAYER-2011-025224

PATIENT
  Sex: Female
  Weight: 62 kg

DRUGS (7)
  1. YASMIN [Suspect]
     Indication: PREMENSTRUAL SYNDROME
     Dosage: UNK
     Dates: start: 20000101, end: 20080101
  2. YASMIN [Suspect]
  3. YAZ [Suspect]
  4. OCELLA [Suspect]
     Indication: PREMENSTRUAL SYNDROME
  5. YAZ [Suspect]
     Indication: PREMENSTRUAL SYNDROME
  6. OCELLA [Suspect]
  7. DILANTIN [Concomitant]

REACTIONS (4)
  - GALLBLADDER OPERATION [None]
  - HEART RATE INCREASED [None]
  - GASTRIC DISORDER [None]
  - WEIGHT INCREASED [None]
